FAERS Safety Report 7639247-X (Version None)
Quarter: 2011Q3

REPORT INFORMATION
  Report Type: 
  Country: None (occurrence: None)
  Receive Date: 20110727
  Receipt Date: 20110719
  Transmission Date: 20111222
  Serious: Yes (Hospitalization)
  Sender: FDA-Public Use
  Company Number: JP-MERCK-1107USA00095

PATIENT
  Age: 61 Year
  Sex: Female
  Weight: 46 kg

DRUGS (5)
  1. DECADRON [Suspect]
     Route: 048
     Dates: start: 20100927, end: 20100928
  2. DECADRON [Suspect]
     Route: 048
     Dates: start: 20100921, end: 20100926
  3. PYRIDOXAL PHOSPHATE [Concomitant]
     Route: 048
     Dates: start: 20100922, end: 20100929
  4. DECADRON [Suspect]
     Indication: PALMAR-PLANTAR ERYTHRODYSAESTHESIA SYNDROME
     Route: 048
     Dates: start: 20100921, end: 20100926
  5. DECADRON [Suspect]
     Route: 048
     Dates: start: 20100927, end: 20100928

REACTIONS (1)
  - PNEUMOCYSTIS JIROVECI PNEUMONIA [None]
